FAERS Safety Report 12990761 (Version 1)
Quarter: 2016Q4

REPORT INFORMATION
  Report Type: Spontaneous
  Country: US (occurrence: US)
  Receive Date: 20161201
  Receipt Date: 20161201
  Transmission Date: 20170207
  Serious: No
  Sender: FDA-Public Use
  Company Number: None

PATIENT
  Age: 72 Year
  Sex: Female
  Weight: 48.99 kg

DRUGS (6)
  1. LEVOFLOXACIN - GENERIC FOR LEVAQUIN [Suspect]
     Active Substance: LEVOFLOXACIN
     Indication: DIVERTICULITIS
     Route: 048
     Dates: start: 20160626
  2. METRONIDAZOLE TAB, 500 MG TEVA [Suspect]
     Active Substance: METRONIDAZOLE
     Indication: DIVERTICULITIS
     Route: 048
     Dates: start: 20160626, end: 20160705
  3. COULUGAN [Concomitant]
  4. SYNTHROID [Concomitant]
     Active Substance: LEVOTHYROXINE SODIUM
  5. VITAMIN D [Concomitant]
     Active Substance: CHOLECALCIFEROL
  6. TRAVATAN [Concomitant]
     Active Substance: TRAVOPROST

REACTIONS (9)
  - Nausea [None]
  - Musculoskeletal stiffness [None]
  - Insomnia [None]
  - Disturbance in attention [None]
  - Tinnitus [None]
  - Myalgia [None]
  - Nightmare [None]
  - Fatigue [None]
  - Headache [None]

NARRATIVE: CASE EVENT DATE: 20160626
